FAERS Safety Report 7372286-5 (Version None)
Quarter: 2011Q1

REPORT INFORMATION
  Report Type: 
  Country: None (occurrence: None)
  Receive Date: 20110324
  Receipt Date: 20110317
  Transmission Date: 20110831
  Serious: Yes (Other)
  Sender: FDA-Public Use
  Company Number: A0919492A

PATIENT
  Age: 48 Year
  Sex: Female

DRUGS (5)
  1. GEODON [Suspect]
     Indication: SCHIZOPHRENIA
     Dates: start: 20100101, end: 20110125
  2. TRAMADOL [Concomitant]
  3. LAMICTAL [Suspect]
     Indication: BIPOLAR DISORDER
     Dosage: 100MG PER DAY
     Route: 048
     Dates: start: 20100901
  4. ZOLOFT [Concomitant]
  5. LYRICA [Concomitant]

REACTIONS (6)
  - HALLUCINATION [None]
  - TREATMENT NONCOMPLIANCE [None]
  - PSYCHOTIC DISORDER [None]
  - GAIT DISTURBANCE [None]
  - TREMOR [None]
  - SOMNOLENCE [None]
